FAERS Safety Report 24442537 (Version 2)
Quarter: 2024Q4

REPORT INFORMATION
  Report Type: Report from Study
  Country: DE (occurrence: DE)
  Receive Date: 20241016
  Receipt Date: 20241017
  Transmission Date: 20250114
  Serious: No
  Sender: ROCHE
  Company Number: DE-ROCHE-3544477

PATIENT
  Sex: Male

DRUGS (2)
  1. EMICIZUMAB [Suspect]
     Active Substance: EMICIZUMAB
     Indication: Factor VIII deficiency
     Dosage: LOADING DOSE
     Route: 058
     Dates: start: 20230918, end: 20231009
  2. EMICIZUMAB [Suspect]
     Active Substance: EMICIZUMAB
     Dosage: MAINTENANCE DOSE
     Route: 058
     Dates: start: 20231023

REACTIONS (1)
  - Haemorrhage [Unknown]
